FAERS Safety Report 9555861 (Version 2)
Quarter: 2014Q3

REPORT INFORMATION
  Report Type: Spontaneous
  Country: US (occurrence: None)
  Receive Date: 20130815
  Receipt Date: 20140815
  Transmission Date: 20150326
  Serious: Yes (Hospitalization, Other)
  Sender: FDA-Public Use
  Company Number: ADR-2013-00943

PATIENT
  Age: 14 Year
  Sex: Male

DRUGS (1)
  1. BACLOFEN. [Suspect]
     Active Substance: BACLOFEN
     Indication: MUSCLE SPASTICITY

REACTIONS (11)
  - Agitation [None]
  - Intracranial hypotension [None]
  - Drug withdrawal syndrome [None]
  - Sedation [None]
  - No therapeutic response [None]
  - Hypertonia [None]
  - Urinary tract infection [None]
  - Hypotonia [None]
  - Irritability [None]
  - Muscle spasticity [None]
  - Muscle tightness [None]

NARRATIVE: CASE EVENT DATE: 20111215
